FAERS Safety Report 7691458-3 (Version None)
Quarter: 2011Q3

REPORT INFORMATION
  Report Type: 
  Country: None (occurrence: None)
  Receive Date: 20110818
  Receipt Date: 20110815
  Transmission Date: 20111222
  Serious: Yes (Death)
  Sender: FDA-Public Use
  Company Number: PHHY2011US56029

PATIENT
  Sex: Male

DRUGS (2)
  1. ARICEPT [Suspect]
     Dosage: UNK UKN, UNK
  2. EXELON [Suspect]
     Dosage: UNK UKN, UNK
     Route: 048

REACTIONS (2)
  - DRUG INEFFECTIVE [None]
  - MULTIPLE SYSTEM ATROPHY [None]
